FAERS Safety Report 5874622-5 (Version None)
Quarter: 2008Q3

REPORT INFORMATION
  Report Type: 
  Country: None (occurrence: None)
  Receive Date: 20080902
  Receipt Date: 20080818
  Transmission Date: 20090109
  Serious: Yes (Life-Threatening, Other)
  Sender: FDA-Public Use
  Company Number: 0710028

PATIENT
  Age: 11 Month
  Sex: Male
  Weight: 16 kg

DRUGS (1)
  1. ORFADIN [Suspect]
     Indication: TYROSINAEMIA
     Dosage: 21MG TDD, 1, 35 MG/KG/DAY, ORAL
     Route: 048
     Dates: start: 20051201

REACTIONS (3)
  - GASTRIC VARICES [None]
  - HEPATIC CIRRHOSIS [None]
  - RENAL IMPAIRMENT [None]
